FAERS Safety Report 5280357-2 (Version None)
Quarter: 2007Q1

REPORT INFORMATION
  Report Type: 
  Country: None (occurrence: None)
  Receive Date: 20061229
  Receipt Date: 20061011
  Transmission Date: 20070707
  Serious: Yes (Other)
  Sender: FDA-Public Use
  Company Number: 2006UW19710

PATIENT
  Age: 79 Year
  Sex: Female
  Weight: 61.234 kg

DRUGS (5)
  1. CRESTOR [Suspect]
     Indication: HYPERCHOLESTEROLAEMIA
     Dosage: 5 MG PO
     Route: 048
  2. INDERAL [Concomitant]
  3. ASCORBIC ACID [Concomitant]
  4. VITAMIN CAP [Concomitant]
  5. FOLIC ACID [Concomitant]

REACTIONS (1)
  - NEUROPATHY PERIPHERAL [None]
